FAERS Safety Report 8272937-7 (Version None)
Quarter: 2012Q2

REPORT INFORMATION
  Report Type: 
  Country: None (occurrence: None)
  Receive Date: 20120411
  Receipt Date: 20120329
  Transmission Date: 20120825
  Serious: Yes (Other)
  Sender: FDA-Public Use
  Company Number: US-ELI_LILLY_AND_COMPANY-US201204000894

PATIENT
  Sex: Male

DRUGS (6)
  1. DIAZEPAM [Concomitant]
  2. OXYCODONE/APAP                          /USA/ [Concomitant]
  3. CYMBALTA [Suspect]
     Indication: MAJOR DEPRESSION
     Dosage: 90 MG, UNKNOWN
  4. CYMBALTA [Suspect]
     Dosage: 60 MG, UNKNOWN
  5. LUNESTA [Concomitant]
     Dosage: UNK
     Dates: end: 20110901
  6. AMBIEN [Concomitant]
     Dosage: UNK
     Dates: end: 20111101

REACTIONS (2)
  - EXFOLIATIVE RASH [None]
  - URTICARIA [None]
